FAERS Safety Report 7577848-8 (Version None)
Quarter: 2011Q2

REPORT INFORMATION
  Report Type: 
  Country: None (occurrence: None)
  Receive Date: 20110628
  Receipt Date: 20110616
  Transmission Date: 20111010
  Serious: Yes (Hospitalization)
  Sender: FDA-Public Use
  Company Number: PHHY2011CH53550

PATIENT
  Age: 36 Year
  Sex: Female

DRUGS (18)
  1. ZOLPIDEM [Concomitant]
     Indication: SLEEP DISORDER
     Dosage: 10 MG, PRN
     Route: 048
     Dates: start: 20110308, end: 20110426
  2. VFEND [Concomitant]
     Indication: PYREXIA
     Dosage: 1 G PER TWO DAYS
     Route: 048
     Dates: start: 20110413, end: 20110421
  3. FLAGYL [Concomitant]
     Indication: PYREXIA
     Dosage: 500 MG ONCE PER THREE DAYS
     Route: 048
     Dates: start: 20110410, end: 20110503
  4. FAMVIR [Suspect]
     Indication: PYREXIA
     Dosage: 500 MG, BID
     Route: 048
     Dates: start: 20110405, end: 20110412
  5. CYTOSAR-U [Concomitant]
     Indication: MYELODYSPLASTIC SYNDROME
     Dosage: 1000 MG/M2, BID
     Route: 042
     Dates: start: 20110329, end: 20110403
  6. MEROPENEM [Concomitant]
     Indication: PYREXIA
     Dosage: 1 MG, TID
     Route: 042
     Dates: start: 20110407, end: 20110414
  7. ACETAMINOPHEN [Concomitant]
     Indication: PAIN
     Dosage: 500 MG, PRN
     Route: 042
     Dates: start: 20110308, end: 20110406
  8. DEXAMETHASONE [Concomitant]
     Dosage: 8 MG ONCE PER THREE DAYS
     Route: 048
     Dates: start: 20110301, end: 20110301
  9. MOTILIUM [Concomitant]
     Indication: VOMITING
     Dosage: 10 MG, PRN
     Route: 060
     Dates: start: 20110412, end: 20110421
  10. PASPERTIN [Concomitant]
     Indication: VOMITING
     Dosage: 10 MG ONCE IN THREE DAYS
     Route: 048
     Dates: start: 20110308, end: 20110411
  11. NEXIUM [Concomitant]
     Indication: VOMITING
     Dosage: 40 MG, QD
     Route: 048
     Dates: start: 20110308
  12. SCOPOLAMINE [Concomitant]
     Dosage: 10 MG, PRN
     Route: 048
     Dates: start: 20110308, end: 20110426
  13. IDARUBICIN HYDROCHLORIDE [Concomitant]
     Indication: MYELODYSPLASTIC SYNDROME
     Dosage: 12 MG/M2, QD
     Route: 042
     Dates: start: 20110310, end: 20110312
  14. ESCITALOPRAM [Concomitant]
     Indication: BIPOLAR DISORDER
     Dosage: 10 MG, QD
     Route: 048
     Dates: start: 20110308, end: 20110421
  15. AMSIDYL [Concomitant]
     Dosage: 120 MG/M2, QD
     Route: 042
     Dates: start: 20110329, end: 20110403
  16. CANCIDAS [Concomitant]
     Indication: PYREXIA
     Dosage: 70 MG, QD
     Route: 048
     Dates: start: 20110407, end: 20110412
  17. PIPERACILLIN AND TAZOBACTAM [Concomitant]
     Indication: PYREXIA
     Dosage: 2.25 MG ONCE FOR THREE DAYS
     Dates: start: 20110415, end: 20110426
  18. PRIMOLUT N [Concomitant]
     Dosage: 5 MG ONCE PER FOUR DAYS
     Route: 048

REACTIONS (7)
  - MYALGIA [None]
  - RASH [None]
  - SEROTONIN SYNDROME [None]
  - HEPATOCELLULAR INJURY [None]
  - BLOOD CREATINE PHOSPHOKINASE INCREASED [None]
  - RHABDOMYOLYSIS [None]
  - COAGULOPATHY [None]
